FAERS Safety Report 20773394 (Version 1)
Quarter: 2022Q2

REPORT INFORMATION
  Report Type: Spontaneous
  Country: US (occurrence: US)
  Receive Date: 20220502
  Receipt Date: 20220502
  Transmission Date: 20220721
  Serious: No
  Sender: FDA-Public Use
  Company Number: US-Calliditas-2022CAL00054

PATIENT
  Age: 35 Year
  Sex: Female

DRUGS (2)
  1. TARPEYO [Suspect]
     Active Substance: BUDESONIDE
     Indication: IgA nephropathy
     Dosage: 16 MG ONCE DAILY
     Route: 050
     Dates: start: 20220325
  2. CLONIDINE [Concomitant]
     Active Substance: CLONIDINE
     Indication: Irritable bowel syndrome
     Dosage: 1 MG EVERY NIGHT

REACTIONS (1)
  - Product residue present [Unknown]
